FAERS Safety Report 25941205 (Version 2)
Quarter: 2025Q4

REPORT INFORMATION
  Report Type: Spontaneous
  Country: US (occurrence: US)
  Receive Date: 20251020
  Receipt Date: 20251023
  Transmission Date: 20260117
  Serious: Yes (Other)
  Sender: SAMSUNG BIOEPIS
  Company Number: US-SAMSUNG BIOEPIS-SB-2025-34694

PATIENT
  Age: 30 Year
  Sex: Female

DRUGS (5)
  1. ECULIZUMAB [Suspect]
     Active Substance: ECULIZUMAB
     Indication: Paroxysmal nocturnal haemoglobinuria
  2. ECULIZUMAB [Suspect]
     Active Substance: ECULIZUMAB
  3. ECULIZUMAB [Suspect]
     Active Substance: ECULIZUMAB
  4. ENOXAPARIN [Concomitant]
     Active Substance: ENOXAPARIN
     Indication: Thrombosis prophylaxis
  5. PENICILLIN V [Concomitant]
     Active Substance: PENICILLIN V
     Indication: Prophylaxis

REACTIONS (3)
  - Breakthrough haemolysis [Recovering/Resolving]
  - Maternal exposure during pregnancy [Unknown]
  - Blood lactate dehydrogenase increased [Unknown]
